FAERS Safety Report 5660844-5 (Version None)
Quarter: 2008Q1

REPORT INFORMATION
  Report Type: 
  Country: None (occurrence: None)
  Receive Date: 20080311
  Receipt Date: 20080306
  Transmission Date: 20080703
  Serious: Yes (Disabling)
  Sender: FDA-Public Use
  Company Number: JP-ALLERGAN-0802761US

PATIENT
  Sex: Female

DRUGS (5)
  1. ALESION TABLET [Suspect]
     Indication: URTICARIA
     Dosage: 20 MG, QD
     Route: 048
     Dates: start: 20071201, end: 20080222
  2. ZADITEN [Suspect]
     Indication: URTICARIA
     Dosage: 1 MG, UNK
     Route: 048
     Dates: start: 20071201, end: 20080222
  3. BONALON [Concomitant]
     Indication: OSTEOPOROSIS
     Dosage: 35 MG, UNK
     Route: 048
     Dates: start: 19950819
  4. MUCOSTA [Concomitant]
     Indication: OSTEOPOROSIS
     Dosage: 200 MG, UNK
     Route: 048
     Dates: start: 20050826
  5. ONEALFA [Concomitant]
     Indication: OSTEOPOROSIS
     Dosage: 1 MG, UNK
     Route: 048
     Dates: start: 20050909

REACTIONS (1)
  - DERMATITIS EXFOLIATIVE [None]
